FAERS Safety Report 10147114 (Version 1)
Quarter: 2014Q2

REPORT INFORMATION
  Report Type: Spontaneous
  Country: US (occurrence: US)
  Receive Date: 20140501
  Receipt Date: 20140501
  Transmission Date: 20141212
  Serious: No
  Sender: FDA-Public Use
  Company Number: US-BAXTER-2014BAX019483

PATIENT
  Sex: 0

DRUGS (1)
  1. CLINIMIX E? -SULFITE-FREE (AMINO ACID WITH ELECTROLYTES IN DEXTROSE WI [Suspect]
     Indication: OCCUPATIONAL EXPOSURE TO PRODUCT
     Route: 061

REACTIONS (2)
  - Product reconstitution issue [Unknown]
  - Occupational exposure to product [Unknown]
